FAERS Safety Report 8153619-9 (Version None)
Quarter: 2012Q1

REPORT INFORMATION
  Report Type: 
  Country: None (occurrence: None)
  Receive Date: 20120221
  Receipt Date: 20111201
  Transmission Date: 20120608
  Serious: Yes (Other)
  Sender: FDA-Public Use
  Company Number: CA-JNJFOC-20120112000

PATIENT
  Sex: Female
  Weight: 95 kg

DRUGS (6)
  1. AZATHIOPRINE [Concomitant]
     Route: 065
  2. ESTROGENIC SUBSTANCE [Concomitant]
     Route: 065
  3. CALCIUM AND VIT D [Concomitant]
     Route: 065
  4. PROMETRIUM [Concomitant]
     Route: 065
  5. REMICADE [Suspect]
     Indication: CROHN'S DISEASE
     Route: 042
     Dates: start: 20111013
  6. ACTONEL [Concomitant]
     Route: 065

REACTIONS (2)
  - CHEST PAIN [None]
  - BACK PAIN [None]
